FAERS Safety Report 8080622-X (Version None)
Quarter: 2012Q1

REPORT INFORMATION
  Report Type: 
  Country: None (occurrence: None)
  Receive Date: 20120130
  Receipt Date: 20120123
  Transmission Date: 20120608
  Serious: Yes (Other)
  Sender: FDA-Public Use
  Company Number: GB-ABBOTT-12P-167-0896847-00

PATIENT
  Sex: Male

DRUGS (2)
  1. HUMIRA [Suspect]
     Indication: RHEUMATOID ARTHRITIS
     Route: 058
     Dates: start: 20050720, end: 20110329
  2. HUMIRA [Suspect]
     Dates: end: 20110715

REACTIONS (9)
  - NERVOUS SYSTEM DISORDER [None]
  - FATIGUE [None]
  - MYELITIS TRANSVERSE [None]
  - OCULAR HYPERAEMIA [None]
  - EYE PAIN [None]
  - HYPOAESTHESIA [None]
  - EYE DISORDER [None]
  - SPINAL CORD DISORDER [None]
  - PARAESTHESIA [None]
